FAERS Safety Report 10247396 (Version 1)
Quarter: 2014Q2

REPORT INFORMATION
  Report Type: Spontaneous
  Country: IT (occurrence: None)
  Receive Date: 20140617
  Receipt Date: 20140617
  Transmission Date: 20141212
  Serious: Yes (Hospitalization)
  Sender: FDA-Public Use
  Company Number: SP07934

PATIENT
  Age: 20 Year
  Sex: Male
  Weight: 48.99 kg

DRUGS (4)
  1. MOVIPREP (SOLUTION) [Suspect]
     Indication: BOWEL PREPARATION
     Dosage: 2 DOSAGE FORMS
     Route: 048
     Dates: start: 20140121, end: 20140121
  2. DELTACORTENE [Concomitant]
  3. CIPROXIN [Concomitant]
  4. CACIT D3 [Concomitant]

REACTIONS (4)
  - Abdominal pain [None]
  - Pyrexia [None]
  - Asthenia [None]
  - Crohn^s disease [None]
